FAERS Safety Report 7778135-5 (Version None)
Quarter: 2011Q3

REPORT INFORMATION
  Report Type: 
  Country: None (occurrence: None)
  Receive Date: 20110926
  Receipt Date: 20100706
  Transmission Date: 20111222
  Serious: No
  Sender: FDA-Public Use
  Company Number: US-MUTUAL PHARMACEUTICAL COMPANY, INC.-2010P1000181

PATIENT
  Sex: Female

DRUGS (1)
  1. BACTRIM DS [Suspect]
     Route: 048
     Dates: start: 20100601

REACTIONS (2)
  - DRUG INEFFECTIVE [None]
  - CYSTITIS [None]
